FAERS Safety Report 4565320-9 (Version None)
Quarter: 2005Q1

REPORT INFORMATION
  Report Type: 
  Country: None (occurrence: None)
  Receive Date: 20050126
  Receipt Date: 20050107
  Transmission Date: 20050727
  Serious: Yes (Death)
  Sender: FDA-Public Use
  Company Number: EWC050142168

PATIENT
  Age: 56 Year
  Sex: Male
  Weight: 58 kg

DRUGS (6)
  1. GEMCITABINE HYDROCHLORIDE                            (GEMCITABINE) [Suspect]
     Indication: LUNG NEOPLASM MALIGNANT
     Dosage: 1600 MG
     Route: 042
     Dates: start: 20030526, end: 20030617
  2. NAVELBINE [Concomitant]
  3. CISPLATIN [Concomitant]
  4. LEUCOVORIN [Concomitant]
  5. ANZEMET                 (DOLASETRON MESILATE) [Concomitant]
  6. DEXAMETHASONE [Concomitant]

REACTIONS (5)
  - ANAEMIA [None]
  - ASTHENIA [None]
  - GRANULOCYTOPENIA [None]
  - LEUKOPENIA [None]
  - MULTI-ORGAN FAILURE [None]
